FAERS Safety Report 16081985 (Version 1)
Quarter: 2019Q1

REPORT INFORMATION
  Report Type: Spontaneous
  Country: US (occurrence: US)
  Receive Date: 20190317
  Receipt Date: 20190317
  Transmission Date: 20190418
  Serious: No
  Sender: FDA-Public Use
  Company Number: US-JNJFOC-20190228396

PATIENT
  Sex: Female

DRUGS (4)
  1. TYLENOL [Suspect]
     Active Substance: ACETAMINOPHEN
     Route: 065
  2. TYLENOL [Suspect]
     Active Substance: ACETAMINOPHEN
     Indication: SCIATICA
     Route: 065
  3. MOTRIN [Suspect]
     Active Substance: IBUPROFEN
     Indication: SCIATICA
     Route: 065
  4. MOTRIN [Suspect]
     Active Substance: IBUPROFEN
     Route: 065

REACTIONS (1)
  - Product use in unapproved indication [Unknown]
